FAERS Safety Report 16565032 (Version 1)
Quarter: 2019Q3

REPORT INFORMATION
  Report Type: Spontaneous
  Country: US (occurrence: US)
  Receive Date: 20190531
  Receipt Date: 20190531
  Transmission Date: 20191004
  Serious: Yes (Hospitalization)
  Sender: FDA-Public Use
  Company Number: None

PATIENT
  Age: 63 Year
  Sex: Male

DRUGS (3)
  1. TALTZ [Suspect]
     Active Substance: IXEKIZUMAB
     Indication: PSORIASIS
     Route: 058
     Dates: end: 20181213
  2. VITAMIN D3 CAPSULE [Concomitant]
  3. FARXIGA 10MG TABLET [Concomitant]

REACTIONS (1)
  - Foot amputation [None]

NARRATIVE: CASE EVENT DATE: 20180201
